FAERS Safety Report 4850105-6 (Version None)
Quarter: 2005Q4

REPORT INFORMATION
  Report Type: 
  Country: None (occurrence: None)
  Receive Date: 20051107
  Receipt Date: 20050826
  Transmission Date: 20060501
  Serious: Yes (Other)
  Sender: FDA-Public Use
  Company Number: PHEH2005US09528

PATIENT
  Sex: Female

DRUGS (3)
  1. ESTRADERM [Suspect]
     Dosage: TRANSDERMAL
     Route: 062
     Dates: start: 19980101
  2. PREMPRO [Suspect]
     Dates: start: 19960101, end: 19980101
  3. PREMPHASE (PREMARIN;CYCRIN 14/14) [Suspect]
     Dates: start: 19960101, end: 19970101

REACTIONS (3)
  - BREAST CANCER [None]
  - DEFORMITY [None]
  - PAIN [None]
